FAERS Safety Report 4876488-9 (Version None)
Quarter: 2006Q1

REPORT INFORMATION
  Report Type: 
  Country: None (occurrence: None)
  Receive Date: 20060110
  Receipt Date: 20050128
  Transmission Date: 20060701
  Serious: No
  Sender: FDA-Public Use
  Company Number: US-BRISTOL-MYERS SQUIBB COMPANY-12842043

PATIENT
  Age: 17 Year
  Sex: Female

DRUGS (2)
  1. MESNEX [Suspect]
     Indication: SYSTEMIC LUPUS ERYTHEMATOSUS
  2. CYTOXAN [Suspect]

REACTIONS (1)
  - RASH [None]
